FAERS Safety Report 17666242 (Version 1)
Quarter: 2020Q2

REPORT INFORMATION
  Report Type: Spontaneous
  Country: IN (occurrence: IN)
  Receive Date: 20200414
  Receipt Date: 20200414
  Transmission Date: 20200713
  Serious: Yes (Death, Other)
  Sender: FDA-Public Use
  Company Number: IN-FRESENIUS KABI-FK202003692

PATIENT
  Age: 13 Year
  Sex: Male

DRUGS (2)
  1. PREDNISONE. [Suspect]
     Active Substance: PREDNISONE
     Indication: DEMYELINATION
     Dosage: UNKNOWN
     Route: 048
  2. METHYLPREDNISOLONE (MANUFACTURER UNKNOWN) [Suspect]
     Active Substance: METHYLPREDNISOLONE
     Indication: DEMYELINATION
     Dosage: UNKNOWN
     Route: 042

REACTIONS (3)
  - Escherichia infection [Unknown]
  - Left ventricular failure [Fatal]
  - Disseminated strongyloidiasis [Fatal]
